FAERS Safety Report 11055788 (Version 2)
Quarter: 2015Q2

REPORT INFORMATION
  Report Type: Spontaneous
  Country: NL (occurrence: NL)
  Receive Date: 20150422
  Receipt Date: 20150616
  Transmission Date: 20150821
  Serious: Yes (Hospitalization)
  Sender: FDA-Public Use
  Company Number: NL-IPSEN BIOPHARMACEUTICALS, INC.-2015-4451

PATIENT
  Age: 25 Year
  Sex: Male

DRUGS (1)
  1. SOMATULINE AUTOGEL [Suspect]
     Active Substance: LANREOTIDE ACETATE
     Indication: PITUITARY TUMOUR BENIGN
     Dosage: 90MG
     Route: 058
     Dates: start: 20140924

REACTIONS (1)
  - Pituitary tumour removal [Unknown]

NARRATIVE: CASE EVENT DATE: 20150330
